FAERS Safety Report 13834246 (Version 1)
Quarter: 2017Q3

REPORT INFORMATION
  Report Type: Spontaneous
  Country: BR (occurrence: BR)
  Receive Date: 20170804
  Receipt Date: 20170804
  Transmission Date: 20171127
  Serious: Yes (Other)
  Sender: FDA-Public Use
  Company Number: BR-ROCHE-1969016

PATIENT
  Age: 54 Year
  Sex: Female

DRUGS (11)
  1. AVASTIN [Suspect]
     Active Substance: BEVACIZUMAB
     Route: 065
  2. TOPIRAMATE. [Concomitant]
     Active Substance: TOPIRAMATE
     Indication: SEIZURE
     Dosage: TAKEN WITH WATER
     Route: 065
     Dates: start: 201706
  3. ONDANSETRON [Concomitant]
     Active Substance: ONDANSETRON
     Indication: NAUSEA
     Dosage: TAKEN WITH WATER
     Route: 065
     Dates: start: 201602
  4. PEMETREXED. [Suspect]
     Active Substance: PEMETREXED
     Indication: LUNG CANCER METASTATIC
     Route: 065
  5. PROLIVE [Concomitant]
     Indication: DIARRHOEA
  6. NOVALGINA [Concomitant]
     Active Substance: METAMIZOLE SODIUM
     Indication: HEADACHE
     Dosage: TAKEN WITH WATER
     Route: 065
  7. ALOIS [Concomitant]
     Active Substance: MEMANTINE
     Dosage: TAKEN WITH WATER
     Route: 065
  8. AVASTIN [Suspect]
     Active Substance: BEVACIZUMAB
     Indication: LUNG CANCER METASTATIC
     Dosage: ON FIFTH CYCLE
     Route: 065
  9. DEXAMETHASONE. [Concomitant]
     Active Substance: DEXAMETHASONE
     Indication: OEDEMA
     Dosage: TAKEN WITH WATER
     Route: 065
     Dates: start: 201607
  10. LEXOTAN [Concomitant]
     Active Substance: BROMAZEPAM
     Indication: INSOMNIA
     Dosage: TAKEN WITH WATER
     Route: 065
     Dates: start: 201705
  11. BUSCOPAN [Concomitant]
     Active Substance: BUTYLSCOPOLAMINE BROMIDE
     Indication: PAIN

REACTIONS (1)
  - Hepatitis C [Recovering/Resolving]
